FAERS Safety Report 9568225 (Version 1)
Quarter: 2013Q3

REPORT INFORMATION
  Report Type: Spontaneous
  Country: US (occurrence: US)
  Receive Date: 20130930
  Receipt Date: 20130930
  Transmission Date: 20140515
  Serious: No
  Sender: FDA-Public Use
  Company Number: US-AMGEN-USASP2013055001

PATIENT
  Age: 74 Year
  Sex: Male
  Weight: 94.33 kg

DRUGS (13)
  1. ENBREL [Suspect]
     Indication: RHEUMATOID ARTHRITIS
     Dosage: 50 MG, QWK
     Route: 058
  2. METHOTREXATE [Concomitant]
     Dosage: 2.5 MG, UNK
  3. COUMADIN                           /00014802/ [Concomitant]
     Dosage: 1 MG, UNK
  4. ADVICOR [Concomitant]
     Dosage: 750-20 MG, UNK
  5. NIASPAN ER [Concomitant]
     Dosage: 1000 UNK, UNK
  6. LISINOPRIL [Concomitant]
     Dosage: 2.5 MG, UNK
  7. DIAZEPAM [Concomitant]
     Dosage: 2 MG, UNK
  8. METOPROLOL [Concomitant]
     Dosage: 50 MG, UNK
  9. DILTIAZEM [Concomitant]
     Dosage: 120 MG, UNK
  10. PREVACID [Concomitant]
     Dosage: 30 MG, UNK
  11. ASPIRIN [Concomitant]
     Dosage: 81 MG, UNK
  12. FISH OIL [Concomitant]
     Dosage: UNK
  13. IRON [Concomitant]
     Dosage: UNK

REACTIONS (2)
  - Liver function test abnormal [Unknown]
  - Anaemia [Unknown]
